FAERS Safety Report 4945204-4 (Version None)
Quarter: 2006Q1

REPORT INFORMATION
  Report Type: 
  Country: None (occurrence: None)
  Receive Date: 20060117
  Receipt Date: 20051111
  Transmission Date: 20060701
  Serious: Yes (Hospitalization)
  Sender: FDA-Public Use
  Company Number: A03200503686

PATIENT
  Age: 53 Year
  Sex: Male

DRUGS (14)
  1. PLAVIX [Suspect]
     Indication: STENT PLACEMENT
     Dosage: 75 MG QD - ORAL
     Route: 048
     Dates: start: 20050701, end: 20051101
  2. RAMIPRIL [Concomitant]
  3. RABEPRAZOLE SODIUM [Concomitant]
  4. LEVOFLOXACIN [Concomitant]
  5. SIMVASTATIN [Concomitant]
  6. ISOSORBIDE [Concomitant]
  7. ALPRAZOLAM [Concomitant]
  8. SUCRALFATE [Concomitant]
  9. BUDESONIDE [Concomitant]
  10. IPRATROPIUM BROMIDE [Concomitant]
  11. ALBUTEROL [Concomitant]
  12. HYDROCODONE BITARTRATE + ACETAMINOPHEN [Concomitant]
  13. GLYCERYL TRINITRATE [Concomitant]
  14. ASPIRIN [Concomitant]

REACTIONS (1)
  - PULMONARY HAEMORRHAGE [None]
